FAERS Safety Report 18132068 (Version 3)
Quarter: 2021Q2

REPORT INFORMATION
  Report Type: Spontaneous
  Country: US (occurrence: US)
  Receive Date: 20200811
  Receipt Date: 20210422
  Transmission Date: 20210717
  Serious: Yes (Other)
  Sender: FDA-Public Use
  Company Number: US-SA-2020SA207259

PATIENT
  Age: 49 Year
  Sex: Female

DRUGS (1)
  1. ZANTAC [Suspect]
     Active Substance: RANITIDINE HYDROCHLORIDE
     Indication: GASTRIC ULCER
     Dosage: 150 MG, QD
     Dates: start: 200901, end: 201909

REACTIONS (3)
  - Oesophageal carcinoma [Recovering/Resolving]
  - Pharyngeal cancer stage II [Recovering/Resolving]
  - Pharyngeal disorder [Unknown]

NARRATIVE: CASE EVENT DATE: 201512
